FAERS Safety Report 11061398 (Version 2)
Quarter: 2015Q2

REPORT INFORMATION
  Report Type: Spontaneous
  Country: US (occurrence: US)
  Receive Date: 20150424
  Receipt Date: 20150511
  Transmission Date: 20150821
  Serious: No
  Sender: FDA-Public Use
  Company Number: US-PFIZER INC-2015135164

PATIENT
  Age: 56 Year
  Sex: Female
  Weight: 53 kg

DRUGS (3)
  1. PREMARIN [Suspect]
     Active Substance: ESTROGENS, CONJUGATED
     Indication: DYSPAREUNIA
     Dosage: 0.75 G, UNK
     Route: 067
     Dates: start: 20150406, end: 20150406
  2. PREMARIN [Suspect]
     Active Substance: ESTROGENS, CONJUGATED
     Indication: VULVOVAGINAL DRYNESS
     Dosage: 0.5 G, DAILY (IN THE NIGHT)
     Route: 067
     Dates: start: 20150404, end: 20150404
  3. PREMARIN [Suspect]
     Active Substance: ESTROGENS, CONJUGATED
     Indication: VULVOVAGINAL DISCOMFORT
     Dosage: 1 G, UNK
     Route: 067
     Dates: start: 20150408

REACTIONS (6)
  - Genital erythema [Recovered/Resolved]
  - Vulvovaginal burning sensation [Recovered/Resolved]
  - Vulvovaginal pruritus [Recovered/Resolved]
  - Vulvovaginal pain [Recovered/Resolved]
  - Vulvovaginal discomfort [Recovered/Resolved]
  - Oedema genital [Recovered/Resolved]

NARRATIVE: CASE EVENT DATE: 20150404
